FAERS Safety Report 18920285 (Version 1)
Quarter: 2021Q1

REPORT INFORMATION
  Report Type: Spontaneous
  Country: GB (occurrence: GB)
  Receive Date: 20210222
  Receipt Date: 20210222
  Transmission Date: 20210420
  Serious: Yes (Other)
  Sender: FDA-Public Use
  Company Number: GB-JNJFOC-20210221040

PATIENT
  Age: 68 Year
  Sex: Female
  Weight: 11 kg

DRUGS (5)
  1. CANDESARTANCILEXETIL/HCTZ [Concomitant]
     Active Substance: CANDESARTAN CILEXETIL\HYDROCHLOROTHIAZIDE
     Indication: BLOOD PRESSURE DIASTOLIC INCREASED
     Route: 065
     Dates: start: 20130206
  2. INFLUENZA VIRUS VACCINE [Concomitant]
     Active Substance: INFLUENZA VIRUS VACCINE
     Indication: PRODUCT USED FOR UNKNOWN INDICATION
     Route: 065
     Dates: start: 202012
  3. ASTRAZENECA COVID?19 VACCINE [Suspect]
     Active Substance: AZD-1222
     Indication: PRODUCT USED FOR UNKNOWN INDICATION
     Route: 065
     Dates: start: 20210206
  4. PARACETAMOL [Suspect]
     Active Substance: ACETAMINOPHEN
     Indication: PRODUCT USED FOR UNKNOWN INDICATION
     Route: 065
  5. BISOPROLOL FUMARATE. [Concomitant]
     Active Substance: BISOPROLOL FUMARATE
     Indication: HEART RATE INCREASED
     Route: 065
     Dates: start: 20140429

REACTIONS (7)
  - Chills [Unknown]
  - Tremor [Unknown]
  - Nervousness [Recovered/Resolved]
  - Nausea [Recovered/Resolved]
  - Muscle spasms [Recovered/Resolved]
  - Influenza like illness [Recovered/Resolved]
  - Arthralgia [Recovered/Resolved]

NARRATIVE: CASE EVENT DATE: 20210206
